FAERS Safety Report 5302357-6 (Version None)
Quarter: 2007Q2

REPORT INFORMATION
  Report Type: 
  Country: None (occurrence: None)
  Receive Date: 20070419
  Receipt Date: 20070411
  Transmission Date: 20071010
  Serious: Yes (Death)
  Sender: FDA-Public Use
  Company Number: NLWYE434412APR07

PATIENT
  Sex: Male
  Weight: 62 kg

DRUGS (5)
  1. EFFEXOR [Suspect]
     Indication: DEPRESSION
     Route: 048
     Dates: start: 20061002, end: 20061015
  2. ENALAPRIL MALEATE [Concomitant]
     Dates: start: 20020101, end: 20061114
  3. SINEMET [Concomitant]
     Dates: start: 20040101
  4. ACETYLSALICYLIC ACID SRT [Concomitant]
     Dates: start: 20010101
  5. LERDIP [Concomitant]
     Dates: start: 20020101, end: 20061114

REACTIONS (1)
  - LEUKOCYTOCLASTIC VASCULITIS [None]
